FAERS Safety Report 16225743 (Version 1)
Quarter: 2019Q2

REPORT INFORMATION
  Report Type: Spontaneous
  Country: US (occurrence: US)
  Receive Date: 20190422
  Receipt Date: 20190422
  Transmission Date: 20190711
  Serious: Yes (Other)
  Sender: FDA-Public Use
  Company Number: PHEH2019US016930

PATIENT
  Age: 76 Year
  Sex: Male
  Weight: 70.3 kg

DRUGS (19)
  1. HYTRIN [Suspect]
     Active Substance: TERAZOSIN HYDROCHLORIDE
     Dosage: 1 MG, UNK
     Route: 065
     Dates: start: 201811
  2. FLOMAX [Concomitant]
     Active Substance: TAMSULOSIN HYDROCHLORIDE
     Indication: PRODUCT USED FOR UNKNOWN INDICATION
     Route: 065
  3. ALEVE [Concomitant]
     Active Substance: NAPROXEN SODIUM
     Indication: PRODUCT USED FOR UNKNOWN INDICATION
     Route: 065
  4. AMANTADIN [Suspect]
     Active Substance: AMANTADINE
     Dosage: 137 MG, QD (AT BEDTIME)
     Route: 048
     Dates: start: 20180912, end: 201811
  5. AMANTADIN [Suspect]
     Active Substance: AMANTADINE
     Dosage: 137 MG, QD (AT BEDTIME)
     Route: 048
     Dates: start: 201811
  6. ASPIRIN. [Concomitant]
     Active Substance: ASPIRIN
     Indication: PRODUCT USED FOR UNKNOWN INDICATION
     Route: 065
  7. FLONASE [Concomitant]
     Active Substance: FLUTICASONE PROPIONATE
     Indication: PRODUCT USED FOR UNKNOWN INDICATION
     Route: 065
  8. MELATONIN [Concomitant]
     Active Substance: MELATONIN
     Indication: MEDICAL DIET
     Route: 065
  9. VITAMIN B12 [Concomitant]
     Active Substance: CYANOCOBALAMIN
     Indication: MEDICAL DIET
     Route: 065
  10. VITAMIN D3 [Concomitant]
     Active Substance: CHOLECALCIFEROL
     Indication: MEDICAL DIET
     Route: 065
  11. ENTACAPONE. [Suspect]
     Active Substance: ENTACAPONE
     Indication: PRODUCT USED FOR UNKNOWN INDICATION
     Dosage: 200 MG, QID
     Route: 065
  12. AMANTADIN [Suspect]
     Active Substance: AMANTADINE
     Dosage: 274 MG, QD (AT BEDTIME)
     Route: 048
     Dates: start: 201811
  13. HYTRIN [Suspect]
     Active Substance: TERAZOSIN HYDROCHLORIDE
     Indication: PRODUCT USED FOR UNKNOWN INDICATION
     Dosage: 10 MG, UNK
     Route: 065
     Dates: end: 201811
  14. AMANTADIN [Suspect]
     Active Substance: AMANTADINE
     Indication: DYSKINESIA
     Dosage: 137 MG, QD (AT BEDTIME)
     Route: 048
     Dates: start: 20180613, end: 20180619
  15. AMANTADIN [Suspect]
     Active Substance: AMANTADINE
     Dosage: 274 MG, QD (AT BEDTIME)
     Route: 048
     Dates: start: 20180620, end: 201808
  16. AMANTADIN [Suspect]
     Active Substance: AMANTADINE
     Dosage: 137 MG, QD (AT BED TIME)
     Route: 048
     Dates: start: 201808, end: 20180912
  17. SINEMET [Concomitant]
     Active Substance: CARBIDOPA\LEVODOPA
     Indication: PRODUCT USED FOR UNKNOWN INDICATION
     Dosage: UNK (25-100 MG)
     Route: 065
  18. SINEMET [Concomitant]
     Active Substance: CARBIDOPA\LEVODOPA
     Dosage: UNK (25-250 MG)
     Route: 065
  19. FINASTERIDE. [Concomitant]
     Active Substance: FINASTERIDE
     Indication: PRODUCT USED FOR UNKNOWN INDICATION
     Route: 065

REACTIONS (9)
  - Dry mouth [Not Recovered/Not Resolved]
  - Therapeutic product effect decreased [Recovered/Resolved]
  - Urinary retention [Unknown]
  - Constipation [Recovering/Resolving]
  - Dizziness [Recovered/Resolved]
  - Urinary tract infection [Unknown]
  - Speech disorder [Not Recovered/Not Resolved]
  - Hallucination, visual [Not Recovered/Not Resolved]
  - Dysphemia [Not Recovered/Not Resolved]

NARRATIVE: CASE EVENT DATE: 2018
